FAERS Safety Report 9290183 (Version 2)
Quarter: 2013Q3

REPORT INFORMATION
  Report Type: Spontaneous
  Country: US (occurrence: None)
  Receive Date: 20130510
  Receipt Date: 20130801
  Transmission Date: 20140515
  Serious: Yes (Hospitalization)
  Sender: FDA-Public Use
  Company Number: ACO_35883_2013

PATIENT
  Age: 66 Year
  Sex: Male

DRUGS (3)
  1. AMPYRA [Suspect]
     Indication: GAIT DISTURBANCE
     Dates: start: 201301
  2. COPAXONE [Suspect]
     Indication: MULTIPLE SCLEROSIS
     Dates: start: 201111, end: 20130319
  3. AUBAGIO [Concomitant]

REACTIONS (4)
  - Anaphylactic shock [None]
  - Muscle spasms [None]
  - Hypoaesthesia [None]
  - Hypoaesthesia [None]
